FAERS Safety Report 8485317-6 (Version None)
Quarter: 2012Q3

REPORT INFORMATION
  Report Type: 
  Country: None (occurrence: None)
  Receive Date: 20120703
  Receipt Date: 20120626
  Transmission Date: 20120928
  Serious: Yes (Hospitalization)
  Sender: FDA-Public Use
  Company Number: KR-ROCHE-1068056

PATIENT
  Sex: Female
  Weight: 62 kg

DRUGS (5)
  1. GANATON [Concomitant]
     Dates: start: 20120313
  2. PEGASYS [Suspect]
     Indication: HEPATITIS C
     Dosage: DATE OF LAST DOSE PRIOR TO EVENT 24/APR/2012
     Route: 058
     Dates: start: 20111220
  3. UCERAX [Concomitant]
     Dates: start: 20120313
  4. BLINDED ALISPORIVIR [Suspect]
     Indication: HEPATITIS C
     Dosage: DATE OF LAST DOSE PRIOR TO EVENT 18/APR/2012
     Route: 048
     Dates: start: 20111220
  5. COPEGUS [Suspect]
     Indication: HEPATITIS C
     Dosage: DATE OF LAST DOSE PRIOR TO EVENT 30/APR/2012
     Route: 048
     Dates: start: 20120412

REACTIONS (1)
  - LOWER LIMB FRACTURE [None]
